FAERS Safety Report 24768023 (Version 1)
Quarter: 2024Q4

REPORT INFORMATION
  Report Type: Spontaneous
  Country: US (occurrence: US)
  Receive Date: 20241223
  Receipt Date: 20241223
  Transmission Date: 20250115
  Serious: No
  Sender: BRECKENRIDGE PHARMACEUTICAL, INC.
  Company Number: US-Breckenridge Pharmaceutical, Inc.-2167546

PATIENT
  Age: 53 Year
  Sex: Female
  Weight: 45.455 kg

DRUGS (1)
  1. TETRACYCLINE HYDROCHLORIDE [Suspect]
     Active Substance: TETRACYCLINE HYDROCHLORIDE
     Indication: Sexually transmitted disease

REACTIONS (7)
  - Pyrexia [Unknown]
  - Therapeutic product ineffective [Unknown]
  - Bone pain [Unknown]
  - Vomiting [Unknown]
  - Nausea [Unknown]
  - Cough [Unknown]
  - Headache [Unknown]
